FAERS Safety Report 9494051 (Version 1)
Quarter: 2013Q1

REPORT INFORMATION
  Report Type: Spontaneous
  Country: US (occurrence: None)
  Receive Date: 20130325
  Receipt Date: 20130325
  Transmission Date: 20140127
  Serious: Yes (Hospitalization)
  Sender: FDA-Public Use
  Company Number: 145768-1

PATIENT
  Age: 42 Year
  Sex: Male
  Weight: 78 kg

DRUGS (1)
  1. LEUCOVORIN CALCIUM [Suspect]
     Indication: COLON CANCER
     Route: 042
     Dates: start: 20121005

REACTIONS (1)
  - Cholecystitis [None]
